FAERS Safety Report 11232809 (Version 2)
Quarter: 2015Q3

REPORT INFORMATION
  Report Type: Spontaneous
  Country: IL (occurrence: IL)
  Receive Date: 20150701
  Receipt Date: 20150709
  Transmission Date: 20151125
  Serious: Yes (Hospitalization, Other)
  Sender: FDA-Public Use
  Company Number: IL-ASTRAZENECA-2015SE62924

PATIENT
  Age: 75 Year
  Sex: Male

DRUGS (10)
  1. LIPITOR [Concomitant]
     Active Substance: ATORVASTATIN CALCIUM
  2. DOXYLINE [Concomitant]
     Active Substance: DOXYCYCLINE HYDROCHLORIDE
  3. XATRAL [Concomitant]
     Active Substance: ALFUZOSIN
  4. NORMITEN [Concomitant]
     Active Substance: ATENOLOL
  5. FORXIGA [Suspect]
     Active Substance: DAPAGLIFLOZIN
     Route: 048
  6. ASPIRIN. [Concomitant]
     Active Substance: ASPIRIN
  7. JANUET [Concomitant]
     Active Substance: METFORMIN HYDROCHLORIDE\SITAGLIPTIN PHOSPHATE
  8. PLAVIX [Concomitant]
     Active Substance: CLOPIDOGREL BISULFATE
  9. DIOVAN [Concomitant]
     Active Substance: VALSARTAN
  10. GLUCOMIN [Concomitant]
     Active Substance: METFORMIN HYDROCHLORIDE

REACTIONS (2)
  - Cerebrovascular accident [Unknown]
  - Aneurysm [Unknown]
